FAERS Safety Report 12701268 (Version 4)
Quarter: 2017Q2

REPORT INFORMATION
  Report Type: Spontaneous
  Country: CA (occurrence: CA)
  Receive Date: 20160831
  Receipt Date: 20170627
  Transmission Date: 20170830
  Serious: Yes (Hospitalization, Other)
  Sender: FDA-Public Use
  Company Number: CA-AMGEN-CANSP2016111018

PATIENT
  Age: 42 Year
  Sex: Female
  Weight: 63 kg

DRUGS (8)
  1. SEPTRA [Suspect]
     Active Substance: SULFAMETHOXAZOLE\TRIMETHOPRIM
     Indication: PROPHYLAXIS
     Dosage: UNK UNK, QD
     Route: 065
     Dates: end: 20160715
  2. COLCHICINE. [Suspect]
     Active Substance: COLCHICINE
     Indication: GOUT
     Dosage: 0.6 MG, BID
     Route: 065
     Dates: end: 20160715
  3. PREDNISONE. [Concomitant]
     Active Substance: PREDNISONE
     Dosage: UNK
  4. ARANESP [Suspect]
     Active Substance: DARBEPOETIN ALFA
     Dosage: 100 MUG, UNK
     Route: 065
  5. IRON [Concomitant]
     Active Substance: IRON
     Dosage: UNK
  6. ATIVAN [Concomitant]
     Active Substance: LORAZEPAM
     Indication: SLEEP DISORDER
     Dosage: UNK
  7. LIDOCAINE. [Concomitant]
     Active Substance: LIDOCAINE
     Dosage: UNK
  8. ARANESP [Suspect]
     Active Substance: DARBEPOETIN ALFA
     Indication: PRODUCT USED FOR UNKNOWN INDICATION
     Dosage: 60 MUG, UNK
     Route: 065
     Dates: start: 201602

REACTIONS (15)
  - Pancytopenia [Unknown]
  - Bone marrow failure [Unknown]
  - Lymphoproliferative disorder [Unknown]
  - Haemodialysis [Unknown]
  - Macrophages increased [Unknown]
  - Natural killer cell count [Unknown]
  - Renal transplant [Unknown]
  - Platelet count increased [Unknown]
  - Macrocytosis [Unknown]
  - Transfusion [Unknown]
  - Refractory cytopenia with unilineage dysplasia [Not Recovered/Not Resolved]
  - Anaemia [Unknown]
  - Hypophosphataemia [Unknown]
  - Amegakaryocytic thrombocytopenia [Unknown]
  - Aplasia pure red cell [Unknown]

NARRATIVE: CASE EVENT DATE: 2016
